FAERS Safety Report 19195909 (Version 1)
Quarter: 2021Q2

REPORT INFORMATION
  Report Type: Spontaneous
  Country: NL (occurrence: NL)
  Receive Date: 20210429
  Receipt Date: 20210429
  Transmission Date: 20210717
  Serious: Yes (Hospitalization)
  Sender: FDA-Public Use
  Company Number: NL-TEVA-2021-NL-1905211

PATIENT
  Sex: Male
  Weight: 97 kg

DRUGS (1)
  1. METHOTREXAAT TABLET 10MG / BRAND NAME NOT SPECIFIED [Suspect]
     Active Substance: METHOTREXATE
     Indication: RHEUMATOID ARTHRITIS
     Dosage: 15 MILLIGRAM DAILY; 1 DD 1,5THERAPY END DATE :ASKU
     Dates: start: 20150923

REACTIONS (2)
  - Immunosuppression [Recovering/Resolving]
  - C-reactive protein normal [Recovering/Resolving]
